FAERS Safety Report 12289232 (Version 2)
Quarter: 2016Q3

REPORT INFORMATION
  Report Type: Spontaneous
  Country: CA (occurrence: CA)
  Receive Date: 20160421
  Receipt Date: 20160907
  Transmission Date: 20161109
  Serious: Yes (Hospitalization)
  Sender: FDA-Public Use
  Company Number: CA-PFIZER INC-2016017724

PATIENT
  Age: 21 Year
  Sex: Female

DRUGS (1)
  1. XELJANZ [Suspect]
     Active Substance: TOFACITINIB CITRATE
     Indication: RHEUMATOID ARTHRITIS
     Dosage: 5 MG, 2X/DAY
     Route: 048
     Dates: start: 201510

REACTIONS (4)
  - Dyspnoea [Unknown]
  - Drug effect incomplete [Unknown]
  - Drug dose omission [Unknown]
  - Pericarditis [Unknown]

NARRATIVE: CASE EVENT DATE: 20160225
